FAERS Safety Report 6978214-6 (Version None)
Quarter: 2010Q3

REPORT INFORMATION
  Report Type: 
  Country: None (occurrence: None)
  Receive Date: 20100913
  Receipt Date: 20100831
  Transmission Date: 20110219
  Serious: Yes (Death, Life-Threatening, Hospitalization, Other)
  Sender: FDA-Public Use
  Company Number: GR-ELI_LILLY_AND_COMPANY-GR201008005974

PATIENT
  Age: 46 Year
  Sex: Male

DRUGS (1)
  1. ZYPREXA [Suspect]
     Indication: SCHIZOPHRENIA
     Dosage: 15 MG, 2/D
     Route: 048
     Dates: start: 20100819

REACTIONS (6)
  - BRAIN DEATH [None]
  - DYSPNOEA [None]
  - LIVER INJURY [None]
  - MULTI-ORGAN FAILURE [None]
  - OVERDOSE [None]
  - PYREXIA [None]
